FAERS Safety Report 4806318-2 (Version None)
Quarter: 2005Q4

REPORT INFORMATION
  Report Type: 
  Country: None (occurrence: None)
  Receive Date: 20051019
  Receipt Date: 20051010
  Transmission Date: 20060501
  Serious: Yes (Other)
  Sender: FDA-Public Use
  Company Number: 2005141037

PATIENT
  Sex: Female
  Weight: 85.2762 kg

DRUGS (6)
  1. NORVASC [Suspect]
     Indication: HYPERTENSION
     Dosage: 10 MG (10 MG, DAILY INTERVAL: EVERY DAY)
  2. UNSPECIFIED IRON MEDICATION (IRON) [Suspect]
     Indication: HAEMOGLOBIN DECREASED
     Dosage: ORAL
     Route: 048
     Dates: start: 20040101, end: 20040101
  3. LEXAPRO [Concomitant]
  4. ASPIRIN [Concomitant]
  5. PROVIGIL [Concomitant]
  6. COREG [Concomitant]

REACTIONS (6)
  - BREAST CANCER FEMALE [None]
  - CATARACT [None]
  - HAEMOGLOBIN DECREASED [None]
  - LUNG DISORDER [None]
  - MALAISE [None]
  - SLEEP APNOEA SYNDROME [None]
